FAERS Safety Report 7181104 (Version 10)
Quarter: 2014Q3

REPORT INFORMATION
  Report Type: Spontaneous
  Country: US (occurrence: US)
  Receive Date: 20091119
  Receipt Date: 20140814
  Transmission Date: 20150326
  Serious: Yes (Hospitalization)
  Sender: FDA-Public Use
  Company Number: US-BAYER-200938772NA

PATIENT
  Age: 38 Year
  Sex: Female
  Weight: 52 kg

DRUGS (6)
  1. ZOLOFT [Concomitant]
     Active Substance: SERTRALINE HYDROCHLORIDE
  2. NEURONTIN [Concomitant]
     Active Substance: GABAPENTIN
  3. XANAX [Concomitant]
     Active Substance: ALPRAZOLAM
  4. YASMIN [Suspect]
     Active Substance: DROSPIRENONE\ETHINYL ESTRADIOL
     Dosage: UNK
     Dates: start: 200308, end: 200405
  5. VITAMINS [Concomitant]
     Active Substance: VITAMINS
  6. TRAMADOL [Concomitant]
     Active Substance: TRAMADOL
     Dosage: 20 MG, UNK
     Route: 048
     Dates: start: 20040417

REACTIONS (9)
  - Ischaemic cerebral infarction [None]
  - Headache [None]
  - Thrombosis [None]
  - Mobility decreased [None]
  - Dysarthria [None]
  - Transient ischaemic attack [None]
  - Neurological symptom [None]
  - Migraine [None]
  - Cerebrovascular accident [None]

NARRATIVE: CASE EVENT DATE: 200405
